FAERS Safety Report 24236042 (Version 1)
Quarter: 2024Q3

REPORT INFORMATION
  Report Type: Spontaneous
  Country: US (occurrence: US)
  Receive Date: 20240822
  Receipt Date: 20240822
  Transmission Date: 20241017
  Serious: No
  Sender: NOVARTIS
  Company Number: US-002147023-NVSC2024US169754

PATIENT
  Sex: Male

DRUGS (1)
  1. LEQVIO [Suspect]
     Active Substance: INCLISIRAN SODIUM
     Indication: Low density lipoprotein decreased
     Dosage: 284 MG (284MG/1.5M), FIRST INJECTION, AGAIN AT 3 MONTHS, THEN EVERY 6 MONTHS THEREAFTER
     Route: 058
     Dates: start: 20231101, end: 20240821

REACTIONS (1)
  - Low density lipoprotein increased [Unknown]
